FAERS Safety Report 13142678 (Version 1)
Quarter: 2017Q1

REPORT INFORMATION
  Report Type: Spontaneous
  Country: US (occurrence: US)
  Receive Date: 20170123
  Receipt Date: 20170123
  Transmission Date: 20170428
  Serious: No
  Sender: FDA-Public Use
  Company Number: None

PATIENT
  Age: 58 Year
  Sex: Male

DRUGS (10)
  1. RITUXIMAB [Concomitant]
     Active Substance: RITUXIMAB
  2. CETIRIZINE [Concomitant]
     Active Substance: CETIRIZINE HYDROCHLORIDE
  3. TAMSULOSIN [Concomitant]
     Active Substance: TAMSULOSIN
  4. ATORVASTATIN [Concomitant]
     Active Substance: ATORVASTATIN
  5. LISPRO INSULIN [Concomitant]
     Active Substance: INSULIN LISPRO
  6. FENOFIBRATE. [Concomitant]
     Active Substance: FENOFIBRATE
  7. REVLIMID [Suspect]
     Active Substance: LENALIDOMIDE
     Indication: PLASMA CELL MYELOMA
     Route: 048
     Dates: start: 20161119, end: 20170117
  8. LISINOPRIL. [Concomitant]
     Active Substance: LISINOPRIL
  9. ALLOPURINOL. [Concomitant]
     Active Substance: ALLOPURINOL
  10. GLARGINE INSULIN [Concomitant]
     Active Substance: INSULIN GLARGINE

REACTIONS (2)
  - Therapy cessation [None]
  - Neutropenia [None]

NARRATIVE: CASE EVENT DATE: 20170117
